FAERS Safety Report 6638134-3 (Version None)
Quarter: 2010Q1

REPORT INFORMATION
  Report Type: 
  Country: None (occurrence: None)
  Receive Date: 20100315
  Receipt Date: 20100315
  Transmission Date: 20100710
  Serious: Yes (Death)
  Sender: FDA-Public Use
  Company Number: None

PATIENT
  Age: 68 Year
  Sex: Male

DRUGS (5)
  1. REVLIMID [Suspect]
     Indication: MULTIPLE MYELOMA
     Dosage: 15MG QD 21D/28D ORALLY
     Route: 048
     Dates: start: 20091201, end: 20100301
  2. DEXAMETHASONE [Concomitant]
  3. INSULIN [Concomitant]
  4. BISACODYL [Concomitant]
  5. GABAPENTIN [Concomitant]

REACTIONS (2)
  - NEUTROPENIC SEPSIS [None]
  - SEPTIC SHOCK [None]
